FAERS Safety Report 18243217 (Version 2)
Quarter: 2020Q3

REPORT INFORMATION
  Report Type: Spontaneous
  Country: HU (occurrence: HU)
  Receive Date: 20200908
  Receipt Date: 20200917
  Transmission Date: 20201103
  Serious: Yes (Hospitalization)
  Sender: FDA-Public Use
  Company Number: HU-JNJFOC-20200904121

PATIENT
  Age: 70 Year
  Sex: Female

DRUGS (3)
  1. CONCOR [Concomitant]
     Active Substance: BISOPROLOL FUMARATE
  2. PRETERAX ARGININE [Concomitant]
     Active Substance: INDAPAMIDE\PERINDOPRIL ARGININE
  3. RIVAROXABAN [Suspect]
     Active Substance: RIVAROXABAN
     Indication: CHA2DS2-VASC ANNUAL STROKE RISK HIGH
     Dosage: UNK
     Route: 048
     Dates: start: 201810, end: 202002

REACTIONS (3)
  - Atrial fibrillation [Unknown]
  - Diastolic dysfunction [Unknown]
  - Aortic valve disease [Unknown]

NARRATIVE: CASE EVENT DATE: 201907
